FAERS Safety Report 6221971-7 (Version None)
Quarter: 2009Q2

REPORT INFORMATION
  Report Type: 
  Country: None (occurrence: None)
  Receive Date: 20090608
  Receipt Date: 20090608
  Transmission Date: 20091009
  Serious: No
  Sender: FDA-Public Use
  Company Number: None

PATIENT
  Age: 47 Year
  Sex: Male
  Weight: 104.3273 kg

DRUGS (1)
  1. ARALEN [Suspect]
     Dosage: 500MG 2 PO
     Route: 048
     Dates: start: 19910413, end: 19910415

REACTIONS (6)
  - DIABETES MELLITUS [None]
  - FEAR OF DISEASE [None]
  - IMPAIRED HEALING [None]
  - SCAR [None]
  - SKIN LESION [None]
  - SUICIDAL IDEATION [None]
